FAERS Safety Report 21176487 (Version 1)
Quarter: 2022Q3

REPORT INFORMATION
  Report Type: Spontaneous
  Country: US (occurrence: US)
  Receive Date: 20220805
  Receipt Date: 20220805
  Transmission Date: 20221027
  Serious: No
  Sender: FDA-Public Use
  Company Number: US-ALLERGAN-2215491US

PATIENT
  Age: 7 Decade
  Sex: Female

DRUGS (2)
  1. VUITY [Interacting]
     Active Substance: PILOCARPINE HYDROCHLORIDE
     Indication: Presbyopia
     Dosage: UNK
     Dates: start: 202204
  2. UNSPECIFIED INGREDIENT [Interacting]
     Active Substance: UNSPECIFIED INGREDIENT

REACTIONS (3)
  - Drug-device interaction [Unknown]
  - Periorbital swelling [Unknown]
  - Contusion [Unknown]
